FAERS Safety Report 19246789 (Version 1)
Quarter: 2021Q2

REPORT INFORMATION
  Report Type: Spontaneous
  Country: CA (occurrence: CA)
  Receive Date: 20210512
  Receipt Date: 20210512
  Transmission Date: 20210717
  Serious: Yes (Other)
  Sender: FDA-Public Use
  Company Number: CA-TEVA-2021-CA-1908979

PATIENT
  Age: 70 Year
  Sex: Female

DRUGS (4)
  1. TAMOXIFEN [Suspect]
     Active Substance: TAMOXIFEN
     Indication: INVASIVE DUCTAL BREAST CARCINOMA
     Route: 048
  2. LEVOTHYROXINE. [Concomitant]
     Active Substance: LEVOTHYROXINE
     Indication: HYPOTHYROIDISM
  3. CHLOROQUINE. [Suspect]
     Active Substance: CHLOROQUINE
     Indication: PORPHYRIA NON-ACUTE
     Route: 048
  4. CHLOROQUINE. [Suspect]
     Active Substance: CHLOROQUINE
     Dosage: 250 MILLIGRAM DAILY;
     Route: 048

REACTIONS (2)
  - Porphyria non-acute [Not Recovered/Not Resolved]
  - Vitiligo [Not Recovered/Not Resolved]
